FAERS Safety Report 4688491-2 (Version None)
Quarter: 2005Q2

REPORT INFORMATION
  Report Type: 
  Country: None (occurrence: None)
  Receive Date: 20050613
  Receipt Date: 20050601
  Transmission Date: 20051028
  Serious: Yes (Hospitalization)
  Sender: FDA-Public Use
  Company Number: JP-JNJFOC-20041106859

PATIENT
  Sex: Female
  Weight: 51 kg

DRUGS (12)
  1. REMICADE [Suspect]
     Route: 042
  2. REMICADE [Suspect]
     Route: 042
  3. REMICADE [Suspect]
     Indication: RHEUMATOID ARTHRITIS
     Route: 042
  4. RHEUMATREX [Suspect]
     Indication: RHEUMATOID ARTHRITIS
     Route: 049
  5. STEROIDS [Suspect]
     Dosage: STEROID PULSE TREATMENT
  6. RABEPRAZOLE SODIUM [Concomitant]
     Route: 049
     Dates: start: 20040705, end: 20041104
  7. CA [Concomitant]
     Route: 049
     Dates: start: 20040705, end: 20041104
  8. KETOPROFEN [Concomitant]
     Dates: start: 20040705, end: 20041104
  9. PREDONINE [Concomitant]
     Indication: RHEUMATOID ARTHRITIS
     Route: 049
  10. LACTIC ACID [Concomitant]
     Route: 049
  11. MENAMIN [Concomitant]
  12. GASLON N [Concomitant]
     Route: 049
     Dates: start: 20040705, end: 20041104

REACTIONS (5)
  - DRUG INEFFECTIVE [None]
  - FUNGAEMIA [None]
  - INTERSTITIAL LUNG DISEASE [None]
  - LISTLESS [None]
  - STAPHYLOCOCCAL INFECTION [None]
